FAERS Safety Report 9855350 (Version 1)
Quarter: 2014Q1

REPORT INFORMATION
  Report Type: Spontaneous
  Country: US (occurrence: None)
  Receive Date: 20140129
  Receipt Date: 20140129
  Transmission Date: 20141002
  Serious: Yes (Hospitalization)
  Sender: FDA-Public Use
  Company Number: None

PATIENT
  Age: 18 Year
  Sex: Male
  Weight: 101.4 kg

DRUGS (4)
  1. METHOTREXATE [Suspect]
     Dates: end: 20140121
  2. MERCAPTOPURINE [Suspect]
     Dates: end: 20140126
  3. CYTARABINE [Suspect]
     Dates: end: 20140124
  4. CYCLOPHOSPHAMIDE [Suspect]
     Dates: end: 20140121

REACTIONS (5)
  - Lung consolidation [None]
  - Dysarthria [None]
  - Hemiparesis [None]
  - Fall [None]
  - Encephalopathy [None]
